FAERS Safety Report 25051099 (Version 1)
Quarter: 2025Q1

REPORT INFORMATION
  Report Type: Report from Study
  Country: CA (occurrence: CA)
  Receive Date: 20250307
  Receipt Date: 20250307
  Transmission Date: 20250408
  Serious: Yes (Other)
  Sender: TAKEDA
  Company Number: CA-TAKEDA-2025TUS021003

PATIENT
  Sex: Male
  Weight: 96 kg

DRUGS (5)
  1. VEDOLIZUMAB [Suspect]
     Active Substance: VEDOLIZUMAB
     Indication: Colitis ulcerative
  2. ENTOCORT [Concomitant]
     Active Substance: BUDESONIDE
     Dosage: 30 MILLIGRAM, QD
     Dates: start: 20241211
  3. MESALAMINE [Concomitant]
     Active Substance: MESALAMINE
  4. FLUCONAZOLE [Concomitant]
     Active Substance: FLUCONAZOLE
  5. TELMISARTAN [Concomitant]
     Active Substance: TELMISARTAN

REACTIONS (9)
  - Haematochezia [Unknown]
  - Deep vein thrombosis [Unknown]
  - Frequent bowel movements [Unknown]
  - Asthenia [Unknown]
  - Mucous stools [Unknown]
  - Faecal volume decreased [Unknown]
  - Diarrhoea [Unknown]
  - Abdominal pain [Unknown]
  - Fatigue [Unknown]
